FAERS Safety Report 17460073 (Version 1)
Quarter: 2020Q1

REPORT INFORMATION
  Report Type: Spontaneous
  Country: IT (occurrence: IT)
  Receive Date: 20200226
  Receipt Date: 20200226
  Transmission Date: 20200409
  Serious: Yes (Death)
  Sender: FDA-Public Use
  Company Number: IT-AKRON, INC.-2080937

PATIENT
  Age: 40 Year
  Sex: Male

DRUGS (10)
  1. CLOZAPINE. [Suspect]
     Active Substance: CLOZAPINE
  2. FLUVOXAMINE MALEATE. [Suspect]
     Active Substance: FLUVOXAMINE MALEATE
  3. CHLORPROMAZINE. [Suspect]
     Active Substance: CHLORPROMAZINE
  4. PROMAZINE [Suspect]
     Active Substance: PROMAZINE
  5. MIDAZOLAM HYDROCHLORIDE. [Suspect]
     Active Substance: MIDAZOLAM HYDROCHLORIDE
  6. CLOTHIAPINE [Suspect]
     Active Substance: CLOTHIAPINE
  7. DELORAZEPAM [Suspect]
     Active Substance: DELORAZEPAM
  8. VALPROIC ACID. [Suspect]
     Active Substance: VALPROIC ACID
     Indication: BIPOLAR DISORDER
  9. HALOPERIDOL. [Suspect]
     Active Substance: HALOPERIDOL
  10. CHLORPHENIRAMINE. [Suspect]
     Active Substance: CHLORPHENIRAMINE

REACTIONS (1)
  - Sudden death [Fatal]
